FAERS Safety Report 20417594 (Version 1)
Quarter: 2022Q1

REPORT INFORMATION
  Report Type: Spontaneous
  Country: US (occurrence: US)
  Receive Date: 20220202
  Receipt Date: 20220202
  Transmission Date: 20220423
  Serious: No
  Sender: FDA-Public Use
  Company Number: US-GW PHARMA-202201USGW00368

PATIENT
  Weight: 90.703 kg

DRUGS (1)
  1. EPIDIOLEX [Suspect]
     Active Substance: CANNABIDIOL
     Indication: Tuberous sclerosis complex
     Dosage: UNK
     Route: 048

REACTIONS (3)
  - Aggression [Unknown]
  - Product supply issue [Unknown]
  - Product prescribing issue [Unknown]
